FAERS Safety Report 23845084 (Version 1)
Quarter: 2024Q2

REPORT INFORMATION
  Report Type: Spontaneous
  Country: US (occurrence: US)
  Receive Date: 20240511
  Receipt Date: 20240511
  Transmission Date: 20240715
  Serious: No
  Sender: FDA-Public Use
  Company Number: US-CIPLA LTD.-2023US06693

PATIENT

DRUGS (2)
  1. ALBUTEROL [Suspect]
     Active Substance: ALBUTEROL
     Indication: Asthma
     Dosage: UNK (2 PUFFS AS NEEDED) PRN, DOSE COUNTER READING WAS 20 IN THE FIRST INHALER
     Route: 065
  2. ALBUTEROL [Suspect]
     Active Substance: ALBUTEROL
     Dosage: UNK (2 PUFFS AS NEEDED) PRN, DOSE COUNTER READING WAS 20-40 IN THE SECOND INHALER
     Route: 065

REACTIONS (3)
  - Intentional product use issue [Unknown]
  - Device delivery system issue [Unknown]
  - Product substitution issue [Unknown]
